FAERS Safety Report 5660142-X (Version None)
Quarter: 2008Q1

REPORT INFORMATION
  Report Type: 
  Country: None (occurrence: None)
  Receive Date: 20080311
  Receipt Date: 20071002
  Transmission Date: 20080703
  Serious: No
  Sender: FDA-Public Use
  Company Number: US-BAYER-200713080BCC

PATIENT
  Age: 54 Year
  Sex: Female

DRUGS (2)
  1. ALEVE [Suspect]
     Indication: INFLUENZA LIKE ILLNESS
     Route: 048
  2. REBIF [Concomitant]

REACTIONS (1)
  - PALPITATIONS [None]
